FAERS Safety Report 19258106 (Version 1)
Quarter: 2021Q2

REPORT INFORMATION
  Report Type: Spontaneous
  Country: US (occurrence: US)
  Receive Date: 20210514
  Receipt Date: 20210514
  Transmission Date: 20210717
  Serious: Yes (Hospitalization, Other)
  Sender: FDA-Public Use
  Company Number: None

PATIENT
  Age: 37 Year
  Sex: Female

DRUGS (11)
  1. INSULIN [Concomitant]
     Active Substance: INSULIN NOS
  2. FOLIC ACID. [Concomitant]
     Active Substance: FOLIC ACID
  3. HUMIRA [Suspect]
     Active Substance: ADALIMUMAB
     Indication: RHEUMATOID ARTHRITIS
     Dosage: ?          OTHER FREQUENCY:EVERY 2 WEEKS;?
     Route: 058
     Dates: start: 20200903
  4. OXYCODONE [Concomitant]
     Active Substance: OXYCODONE
  5. METHOTREXATE. [Concomitant]
     Active Substance: METHOTREXATE
  6. ACETAZOLAMID [Concomitant]
     Active Substance: ACETAZOLAMIDE
  7. VIT. D3 [Concomitant]
  8. VIT. D [Concomitant]
     Active Substance: VITAMIN D NOS
  9. DICLOFENAC GEL [Concomitant]
     Active Substance: DICLOFENAC
  10. METHOCARBAM [Concomitant]
     Active Substance: METHOCARBAMOL
  11. FAMOTIDINE. [Concomitant]
     Active Substance: FAMOTIDINE

REACTIONS (2)
  - Surgery [None]
  - Therapy interrupted [None]
